FAERS Safety Report 9816146 (Version 1)
Quarter: 2014Q1

REPORT INFORMATION
  Report Type: Spontaneous
  Country: IN (occurrence: IN)
  Receive Date: 20140114
  Receipt Date: 20140114
  Transmission Date: 20141002
  Serious: Yes (Death)
  Sender: FDA-Public Use
  Company Number: IN-PFIZER INC-2014006896

PATIENT
  Sex: 0

DRUGS (1)
  1. SUTENT [Suspect]

REACTIONS (1)
  - Death [Fatal]
